FAERS Safety Report 12556775 (Version 2)
Quarter: 2016Q3

REPORT INFORMATION
  Report Type: Report from Study
  Country: US (occurrence: US)
  Receive Date: 20160714
  Receipt Date: 20160908
  Transmission Date: 20161109
  Serious: Yes (Hospitalization, Other)
  Sender: FDA-Public Use
  Company Number: US-009507513-1607USA005070

PATIENT
  Age: 66 Year
  Sex: Male

DRUGS (5)
  1. LACTOBACILLUS ACIDOPHILUS [Concomitant]
     Active Substance: LACTOBACILLUS ACIDOPHILUS
     Dosage: ONCE A DAY
  2. VITAMIN D [Concomitant]
     Active Substance: CHOLECALCIFEROL
     Dosage: 1000MG, ONCE DAILY
  3. NOXAFIL [Suspect]
     Active Substance: POSACONAZOLE
     Indication: LOWER RESPIRATORY TRACT INFECTION FUNGAL
     Dosage: 100 MG, THREE TIMES DAILY
     Route: 048
     Dates: start: 20160628
  4. HEPARIN [Concomitant]
     Active Substance: HEPARIN SODIUM
     Indication: THROMBOSIS PROPHYLAXIS
     Dosage: UNK, EVERY 8 HOURS
  5. CALCIUM (UNSPECIFIED) (+) VITAMIN D (UNSPECIFIED) [Concomitant]
     Active Substance: CALCIUM CARBONATE\VITAMIN D
     Dosage: DAILY

REACTIONS (2)
  - Metastases to lung [Unknown]
  - Lower respiratory tract infection fungal [Recovered/Resolved]

NARRATIVE: CASE EVENT DATE: 20160705
